FAERS Safety Report 18577222 (Version 5)
Quarter: 2021Q4

REPORT INFORMATION
  Report Type: Spontaneous
  Country: CO (occurrence: CO)
  Receive Date: 20201204
  Receipt Date: 20211007
  Transmission Date: 20220303
  Serious: Yes (Life-Threatening, Other)
  Sender: FDA-Public Use
  Company Number: CO-MERCK HEALTHCARE KGAA-9201632

PATIENT
  Age: 67 Year
  Sex: Female
  Weight: 64 kg

DRUGS (22)
  1. METFORMIN [Suspect]
     Active Substance: METFORMIN HYDROCHLORIDE
     Indication: Diabetes mellitus
     Route: 048
  2. METFORMIN [Suspect]
     Active Substance: METFORMIN HYDROCHLORIDE
     Route: 048
  3. METFORMIN [Suspect]
     Active Substance: METFORMIN HYDROCHLORIDE
     Route: 048
  4. TASIGNA [Suspect]
     Active Substance: NILOTINIB
     Indication: Chronic myeloid leukaemia
     Route: 048
     Dates: start: 20121201, end: 20170206
  5. TASIGNA [Suspect]
     Active Substance: NILOTINIB
     Route: 048
     Dates: start: 201403
  6. TASIGNA [Suspect]
     Active Substance: NILOTINIB
     Route: 048
     Dates: start: 201403
  7. TASIGNA [Suspect]
     Active Substance: NILOTINIB
     Route: 048
  8. TASIGNA [Suspect]
     Active Substance: NILOTINIB
     Route: 048
  9. TASIGNA [Suspect]
     Active Substance: NILOTINIB
     Route: 048
     Dates: start: 20140527
  10. TASIGNA [Suspect]
     Active Substance: NILOTINIB
     Route: 048
     Dates: start: 20141001
  11. TASIGNA [Suspect]
     Active Substance: NILOTINIB
     Route: 048
     Dates: start: 20191113
  12. TASIGNA [Suspect]
     Active Substance: NILOTINIB
     Route: 048
  13. TASIGNA [Suspect]
     Active Substance: NILOTINIB
     Route: 048
     Dates: start: 20191113
  14. TASIGNA [Suspect]
     Active Substance: NILOTINIB
     Route: 048
  15. TASIGNA [Suspect]
     Active Substance: NILOTINIB
     Route: 048
     Dates: start: 2014
  16. TASIGNA [Suspect]
     Active Substance: NILOTINIB
     Route: 048
     Dates: start: 20200624
  17. TASIGNA [Suspect]
     Active Substance: NILOTINIB
     Dosage: 2 CAPSULES OF 150 MG EVERY 12 HOURS
     Route: 048
     Dates: start: 20121201, end: 20170206
  18. TASIGNA [Suspect]
     Active Substance: NILOTINIB
     Dates: start: 2014, end: 20201124
  19. DICLOFENAC [Concomitant]
     Active Substance: DICLOFENAC
     Indication: Product used for unknown indication
  20. TRAMADOL [Concomitant]
     Active Substance: TRAMADOL
     Indication: Product used for unknown indication
  21. DIPHENHYDRAMINE [Concomitant]
     Active Substance: DIPHENHYDRAMINE
     Indication: Product used for unknown indication
  22. MAGNESIUM SULFATE [Concomitant]
     Active Substance: MAGNESIUM SULFATE
     Indication: Product used for unknown indication

REACTIONS (24)
  - Acute lymphocytic leukaemia [Unknown]
  - General physical health deterioration [Unknown]
  - Cholelithiasis [Unknown]
  - Abnormal uterine bleeding [Unknown]
  - Hypothyroidism [Unknown]
  - Malignant neoplasm progression [Unknown]
  - Chronic myeloid leukaemia [Unknown]
  - Occult blood positive [Unknown]
  - Toothache [Recovering/Resolving]
  - Loose tooth [Recovering/Resolving]
  - Varicose vein [Unknown]
  - Blood creatinine decreased [Unknown]
  - Microalbuminuria [Unknown]
  - Iron deficiency anaemia [Recovered/Resolved]
  - Manganese increased [Unknown]
  - Ocular hyperaemia [Unknown]
  - Oedema peripheral [Unknown]
  - Normochromic normocytic anaemia [Unknown]
  - Dyslipidaemia [Unknown]
  - Blood glucose increased [Unknown]
  - Hepatic steatosis [Unknown]
  - Cough [Unknown]
  - Depression [Recovered/Resolved]
  - Varices oesophageal [Unknown]

NARRATIVE: CASE EVENT DATE: 20151005
